FAERS Safety Report 8450039-4 (Version None)
Quarter: 2012Q2

REPORT INFORMATION
  Report Type: 
  Country: None (occurrence: None)
  Receive Date: 20120620
  Receipt Date: 20120608
  Transmission Date: 20120825
  Serious: Yes (Other)
  Sender: FDA-Public Use
  Company Number: CZ-TEVA-343375ISR

PATIENT
  Age: 41 Year
  Sex: Female

DRUGS (2)
  1. COPAXONE [Suspect]
     Indication: MULTIPLE SCLEROSIS
     Route: 023
     Dates: start: 20060101
  2. PREDNISONE TAB [Concomitant]

REACTIONS (2)
  - INJECTION SITE NECROSIS [None]
  - INCORRECT ROUTE OF DRUG ADMINISTRATION [None]
